FAERS Safety Report 12468646 (Version 1)
Quarter: 2016Q2

REPORT INFORMATION
  Report Type: Spontaneous
  Country: US (occurrence: US)
  Receive Date: 20160615
  Receipt Date: 20160615
  Transmission Date: 20160815
  Serious: Yes (Other)
  Sender: FDA-Public Use
  Company Number: US-GEMINI LABORATORIES, LLC-GEM201606-000001

PATIENT
  Age: 50 Year
  Sex: Male

DRUGS (1)
  1. OXANDROLONE. [Suspect]
     Active Substance: OXANDROLONE
     Indication: EATING DISORDER

REACTIONS (2)
  - Hepatic function abnormal [Unknown]
  - Headache [Unknown]
